FAERS Safety Report 7644901-X (Version None)
Quarter: 2011Q3

REPORT INFORMATION
  Report Type: 
  Country: None (occurrence: None)
  Receive Date: 20110729
  Receipt Date: 20110719
  Transmission Date: 20111222
  Serious: Yes (Hospitalization, Other)
  Sender: FDA-Public Use
  Company Number: US-ROCHE-791828

PATIENT
  Age: 73 Year
  Sex: Female
  Weight: 52.9 kg

DRUGS (7)
  1. CARBOPLATIN [Suspect]
     Indication: OVARIAN EPITHELIAL CANCER
     Dosage: ON DAY 1
     Route: 042
     Dates: start: 20110326, end: 20110616
  2. REMERON [Concomitant]
  3. PACLITAXEL [Suspect]
     Indication: OVARIAN EPITHELIAL CANCER
     Dosage: FREQUENCY: OVER 1 HOUR ON DAYS 1,8 AND 15
     Route: 042
     Dates: start: 20110324, end: 20110616
  4. BEVACIZUMAB [Suspect]
     Indication: OVARIAN EPITHELIAL CANCER
     Dosage: FREQUENCY :OVER 30-90 MINS ON DAY 1
     Route: 042
     Dates: start: 20110324, end: 20110616
  5. LEVOTHYROXINE SODIUM [Concomitant]
  6. COLACE [Concomitant]
  7. VITAMIN D [Concomitant]
     Dosage: DRUG NAME: VITAMIN D

REACTIONS (9)
  - FATIGUE [None]
  - WEIGHT DECREASED [None]
  - CLOSTRIDIAL INFECTION [None]
  - PLATELET COUNT [None]
  - NEUTROPHIL COUNT [None]
  - HAEMOGLOBIN [None]
  - OPPORTUNISTIC INFECTION [None]
  - WHITE BLOOD CELL COUNT [None]
  - LYMPHOPENIA [None]
